FAERS Safety Report 9196107 (Version 2)
Quarter: 2013Q4

REPORT INFORMATION
  Report Type: Spontaneous
  Country: US (occurrence: US)
  Receive Date: 20130328
  Receipt Date: 20131118
  Transmission Date: 20140711
  Serious: Yes (Other)
  Sender: FDA-Public Use
  Company Number: US-BAYER-2013-038099

PATIENT
  Age: 20 Year
  Sex: Female

DRUGS (18)
  1. YAZ [Suspect]
     Indication: ACNE
  2. YASMIN [Suspect]
     Indication: ACNE
  3. OCELLA [Suspect]
     Indication: ACNE
     Route: 048
  4. CLARITHROMYCIN [Concomitant]
     Dosage: 500 MG, UNK
  5. AMOXICILLIN [Concomitant]
     Dosage: 500 MG, UNK
  6. SUCRALFATE [Concomitant]
     Dosage: 1 G, UNK
  7. PROMETHAZINE [Concomitant]
     Dosage: 4 MG, UNK
  8. ONDANSETRON [Concomitant]
     Dosage: 4 MG, UNK
  9. ONDANSETRON HYDROCHLORIDE [Concomitant]
     Dosage: 4 MG, UNK
  10. OMEPRAZOLE [Concomitant]
     Dosage: 40 MG, UNK
  11. LACTULOSE [Concomitant]
     Dosage: 10GM/15ML
  12. CIPROFLOXACIN [Concomitant]
     Dosage: 500 MG, UNK
  13. SCOPOLAMINE [Concomitant]
     Dosage: 1.5MG/72HR
  14. DICYCLOMINE [Concomitant]
     Dosage: 10 MG, UNK
  15. NORTRIPTYLINE HCL [Concomitant]
     Dosage: 10 MG, UNK
  16. LORAZEPAM [Concomitant]
     Dosage: 1 MG, UNK
  17. AMITRIPTYLINE [Concomitant]
     Dosage: 25 MG, UNK
  18. AMITRIPTYLINE [Concomitant]
     Dosage: 10 MG, UNK

REACTIONS (4)
  - Cholecystitis chronic [None]
  - Injury [None]
  - Pain [None]
  - Pain [None]
